FAERS Safety Report 16699623 (Version 6)
Quarter: 2022Q1

REPORT INFORMATION
  Report Type: Spontaneous
  Country: GB (occurrence: GB)
  Receive Date: 20190813
  Receipt Date: 20220220
  Transmission Date: 20220423
  Serious: Yes (Death, Hospitalization)
  Sender: FDA-Public Use
  Company Number: GB-JNJFOC-20190811299

PATIENT
  Age: 55 Year
  Sex: Male

DRUGS (6)
  1. RISPERDAL [Suspect]
     Active Substance: RISPERIDONE
     Indication: Petit mal epilepsy
     Dosage: //2019
     Route: 065
     Dates: start: 2004
  2. RISPERDAL [Suspect]
     Active Substance: RISPERIDONE
     Indication: Seizure
     Dosage: 3 MG FOR 9 YEARS
     Route: 048
     Dates: start: 2004
  3. RISPERIDONE [Suspect]
     Active Substance: RISPERIDONE
     Indication: Seizure
     Dosage: //2019
     Route: 065
  4. RAMIPRIL [Concomitant]
     Active Substance: RAMIPRIL
     Indication: Hypertension
     Dosage: 245
  5. AMLODIPINE [Concomitant]
     Active Substance: AMLODIPINE BESYLATE
     Indication: Hypertension
     Dosage: 245
  6. ZARONTIN [Concomitant]
     Active Substance: ETHOSUXIMIDE

REACTIONS (30)
  - Gastric cancer [Fatal]
  - Lung neoplasm malignant [Fatal]
  - Colon cancer [Fatal]
  - Hyperhidrosis [Unknown]
  - Abnormal weight gain [Unknown]
  - Dyspnoea [Unknown]
  - Gynaecomastia [Unknown]
  - Rash pruritic [Not Recovered/Not Resolved]
  - Somnolence [Unknown]
  - Dyskinesia [Unknown]
  - Pollakiuria [Unknown]
  - Seizure [Unknown]
  - Hyperglycaemia [Unknown]
  - Breast enlargement [Unknown]
  - Insomnia [Unknown]
  - Feeling hot [Unknown]
  - Vomiting [Unknown]
  - Vision blurred [Unknown]
  - Hypotension [Unknown]
  - Nausea [Unknown]
  - Increased appetite [Unknown]
  - Dizziness [Unknown]
  - Epilepsy [Unknown]
  - Urinary tract infection [Unknown]
  - Disturbance in attention [Unknown]
  - Cough [Unknown]
  - Sleep apnoea syndrome [Unknown]
  - Blood glucose increased [Unknown]
  - Product use in unapproved indication [Unknown]
  - Off label use [Unknown]

NARRATIVE: CASE EVENT DATE: 20040101
